FAERS Safety Report 7517099-6 (Version None)
Quarter: 2011Q2

REPORT INFORMATION
  Report Type: 
  Country: None (occurrence: None)
  Receive Date: 20110601
  Receipt Date: 20110523
  Transmission Date: 20111010
  Serious: Yes (Hospitalization)
  Sender: FDA-Public Use
  Company Number: DE-UCBSA-032569

PATIENT
  Sex: Female
  Weight: 94 kg

DRUGS (2)
  1. CIMZIA [Suspect]
     Route: 058
     Dates: start: 20110503
  2. UNSPECIFIED ANTIBIOTIC [Concomitant]

REACTIONS (6)
  - VOMITING [None]
  - DIARRHOEA [None]
  - CHILLS [None]
  - URINARY TRACT INFECTION [None]
  - NIGHT SWEATS [None]
  - ABDOMINAL PAIN [None]
